FAERS Safety Report 23914241 (Version 1)
Quarter: 2024Q2

REPORT INFORMATION
  Report Type: Report from Study
  Country: MX (occurrence: MX)
  Receive Date: 20240529
  Receipt Date: 20240529
  Transmission Date: 20240716
  Serious: Yes (Other)
  Sender: FDA-Public Use
  Company Number: MX-002147023-NVSC2024MX112478

PATIENT
  Age: 53 Year
  Sex: Female
  Weight: 92 kg

DRUGS (1)
  1. IMATINIB [Suspect]
     Active Substance: IMATINIB
     Indication: Chronic myeloid leukaemia
     Dosage: 800 MG, QD (4 OF 200 MG)
     Route: 048
     Dates: start: 20231201, end: 20240430

REACTIONS (3)
  - Cardiotoxicity [Unknown]
  - Cardiac failure [Unknown]
  - Platelet count increased [Unknown]

NARRATIVE: CASE EVENT DATE: 20240402
